FAERS Safety Report 13899309 (Version 1)
Quarter: 2017Q3

REPORT INFORMATION
  Report Type: Spontaneous
  Country: US (occurrence: US)
  Receive Date: 20170823
  Receipt Date: 20170823
  Transmission Date: 20171127
  Serious: No
  Sender: FDA-Public Use
  Company Number: US-JAZZ-2017-US-008154

PATIENT
  Sex: Male

DRUGS (32)
  1. LEVOTHYROXINE. [Concomitant]
     Active Substance: LEVOTHYROXINE
  2. FLUTICASONE PROPIONATE. [Concomitant]
     Active Substance: FLUTICASONE PROPIONATE
  3. SINGULAIR [Concomitant]
     Active Substance: MONTELUKAST SODIUM
  4. AREDSAN [Concomitant]
  5. SODIUM CHLORIDE. [Concomitant]
     Active Substance: SODIUM CHLORIDE
  6. CLINDAMYCIN. [Concomitant]
     Active Substance: CLINDAMYCIN
  7. IMITREX [Concomitant]
     Active Substance: SUMATRIPTAN SUCCINATE
  8. BENADRYL [Concomitant]
     Active Substance: DIPHENHYDRAMINE HYDROCHLORIDE
  9. CROMOLYN SODIUM. [Concomitant]
     Active Substance: CROMOLYN SODIUM
  10. XYREM [Suspect]
     Active Substance: SODIUM OXYBATE
     Indication: NARCOLEPSY
     Dosage: 4.5G, BID
     Route: 048
     Dates: start: 201212, end: 201411
  11. PROVIGIL [Concomitant]
     Active Substance: MODAFINIL
  12. XYREM [Suspect]
     Active Substance: SODIUM OXYBATE
     Dosage: DOSE ADJUSTMENT
     Route: 048
     Dates: start: 201411, end: 201602
  13. L-CARNITINE                        /00878601/ [Concomitant]
     Active Substance: LEVOCARNITINE
  14. PREVACID [Concomitant]
     Active Substance: LANSOPRAZOLE
  15. CIALIS [Concomitant]
     Active Substance: TADALAFIL
  16. OXYCODONE AND ACETAMINOPHEN [Concomitant]
     Active Substance: ACETAMINOPHEN\OXYCODONE HYDROCHLORIDE
  17. PRAVASTATIN. [Concomitant]
     Active Substance: PRAVASTATIN
  18. VITAMIN C [Concomitant]
     Active Substance: ASCORBIC ACID
  19. XYREM [Suspect]
     Active Substance: SODIUM OXYBATE
     Dosage: 4.5G, BID
     Route: 048
     Dates: start: 201602
  20. QNASL [Concomitant]
     Active Substance: BECLOMETHASONE DIPROPIONATE
  21. VITAMIN B-1 [Concomitant]
     Active Substance: THIAMINE
  22. TRETINOIN. [Concomitant]
     Active Substance: TRETINOIN
  23. ADDERALL [Concomitant]
     Active Substance: AMPHETAMINE ASPARTATE\AMPHETAMINE SULFATE\DEXTROAMPHETAMINE SACCHARATE\DEXTROAMPHETAMINE SULFATE
  24. ATENOLOL. [Concomitant]
     Active Substance: ATENOLOL
  25. IRON [Concomitant]
     Active Substance: IRON
  26. POTASSIUM CITRATE. [Concomitant]
     Active Substance: POTASSIUM CITRATE
  27. VITAMIN A                          /00056001/ [Concomitant]
     Active Substance: RETINOL
  28. FIORICET [Concomitant]
     Active Substance: ACETAMINOPHEN\BUTALBITAL\CAFFEINE
  29. LORATADINE. [Concomitant]
     Active Substance: LORATADINE
  30. DESOXYN [Concomitant]
     Active Substance: METHAMPHETAMINE HYDROCHLORIDE
  31. CALCIUM ACETATE. [Concomitant]
     Active Substance: CALCIUM ACETATE
  32. VITAMIN D                          /00107901/ [Concomitant]
     Active Substance: ERGOCALCIFEROL

REACTIONS (1)
  - Wrong technique in product usage process [Unknown]
